FAERS Safety Report 16629360 (Version 1)
Quarter: 2019Q3

REPORT INFORMATION
  Report Type: Spontaneous
  Country: US (occurrence: US)
  Receive Date: 20190612
  Receipt Date: 20190612
  Transmission Date: 20191004
  Serious: No
  Sender: FDA-Public Use
  Company Number: None

PATIENT
  Age: 67 Year
  Sex: Male

DRUGS (1)
  1. ZYTIGA [Suspect]
     Active Substance: ABIRATERONE ACETATE
     Route: 048
     Dates: start: 201806

REACTIONS (6)
  - Myalgia [None]
  - Decreased appetite [None]
  - Dyspnoea [None]
  - Nausea [None]
  - Bone pain [None]
  - Feeling abnormal [None]

NARRATIVE: CASE EVENT DATE: 20190609
